FAERS Safety Report 26072570 (Version 1)
Quarter: 2025Q4

REPORT INFORMATION
  Report Type: Report from Study
  Country: CA (occurrence: CA)
  Receive Date: 20251120
  Receipt Date: 20251120
  Transmission Date: 20260117
  Serious: Yes (Hospitalization)
  Sender: CELLTRION
  Company Number: CA-CELLTRION INC.-2025CA030043

PATIENT

DRUGS (14)
  1. INFLIXIMAB-DYYB [Suspect]
     Active Substance: INFLIXIMAB-DYYB
     Indication: Crohn^s disease
     Dosage: REMDANTRY - MAINTENANCE - 800 MG - IV  (INTRAVENOUS) EVERY 4 WEEKS
     Route: 042
     Dates: start: 20250626
  2. INFLIXIMAB-DYYB [Suspect]
     Active Substance: INFLIXIMAB-DYYB
     Dosage: REMDANTRY - MAINTENANCE - 800 MG - IV  (INTRAVENOUS) EVERY 4 WEEKS
     Route: 042
     Dates: start: 20250820
  3. INFLIXIMAB-DYYB [Suspect]
     Active Substance: INFLIXIMAB-DYYB
     Dosage: 800 MG EVERY 6 WEEKS - MAINTENANCE
     Route: 042
     Dates: start: 20251002
  4. INFLIXIMAB-DYYB [Suspect]
     Active Substance: INFLIXIMAB-DYYB
     Dosage: 800 MG EVERY 6 WEEKS - MAINTENANCE
     Route: 042
     Dates: start: 20251112
  5. OZEMPIC [Concomitant]
     Active Substance: SEMAGLUTIDE
     Dosage: 1 MG, 1/WEEK
  6. CITALOPRAM [Concomitant]
     Active Substance: CITALOPRAM
     Dosage: 20 MG/DAY
  7. REDDY RIVAROXABAN [Concomitant]
     Dosage: 20 MG/DAY
  8. APO ALFUZOSIN [Concomitant]
     Dosage: 10 MG/DAY
  9. AMLODIPINE BESYLATE [Concomitant]
     Active Substance: AMLODIPINE BESYLATE
     Dosage: 10 MG/DAY
  10. JAMP ALLOPURINOL [Concomitant]
     Dosage: 200 MG/DAY
  11. FERROUS SULFATE [Concomitant]
     Active Substance: FERROUS SULFATE
     Dosage: 300 MG EVERY 2 DAYS
  12. ESOMEPRAZOLE [Concomitant]
     Active Substance: ESOMEPRAZOLE
     Dosage: 40 MG/DAY
  13. PRAVASTATIN [Concomitant]
     Active Substance: PRAVASTATIN
  14. TEVA DILTIAZEM XC [Concomitant]
     Dosage: 240 MG/DAY

REACTIONS (11)
  - Arterial occlusive disease [Recovered/Resolved]
  - Muscle spasms [Recovered/Resolved]
  - Vomiting [Recovered/Resolved]
  - Dizziness [Recovered/Resolved]
  - Abdominal pain [Recovered/Resolved]
  - Diarrhoea [Recovered/Resolved]
  - Constipation [Recovered/Resolved]
  - Overdose [Unknown]
  - Intentional product use issue [Unknown]
  - Off label use [Unknown]
  - Inappropriate schedule of product administration [Recovered/Resolved]

NARRATIVE: CASE EVENT DATE: 20250820
